FAERS Safety Report 16685129 (Version 1)
Quarter: 2019Q3

REPORT INFORMATION
  Report Type: Spontaneous
  Country: US (occurrence: US)
  Receive Date: 20190808
  Receipt Date: 20190808
  Transmission Date: 20191004
  Serious: Yes (Other)
  Sender: FDA-Public Use
  Company Number: US-VIFOR (INTERNATIONAL) INC.-VIT-2019-07657

PATIENT
  Age: 74 Year
  Sex: Male

DRUGS (23)
  1. CIMETIDINE [Concomitant]
     Active Substance: CIMETIDINE
  2. COENZYME [Concomitant]
     Active Substance: UBIDECARENONE
  3. GLIMEPIRIDE. [Concomitant]
     Active Substance: GLIMEPIRIDE
  4. VITAMIN D [Concomitant]
     Active Substance: VITAMIN D NOS
  5. BENADRYL [Concomitant]
     Active Substance: DIPHENHYDRAMINE HYDROCHLORIDE
  6. CLOPIDOGREL [Concomitant]
     Active Substance: CLOPIDOGREL BISULFATE
  7. DIPHENHYDRAMINE. [Concomitant]
     Active Substance: DIPHENHYDRAMINE
  8. FOLIC ACID. [Concomitant]
     Active Substance: FOLIC ACID
  9. SENNA [Concomitant]
     Active Substance: SENNA LEAF\SENNOSIDES\SENNOSIDES A AND B
  10. TOUJEO SOLO [Concomitant]
  11. VITAMIN B12 [Concomitant]
     Active Substance: CYANOCOBALAMIN
  12. ELIQUIS [Concomitant]
     Active Substance: APIXABAN
     Dates: start: 20190726
  13. AMLODIPINE [Concomitant]
     Active Substance: AMLODIPINE BESYLATE
  14. A-HYDROCORT [Concomitant]
     Active Substance: HYDROCORTISONE SODIUM SUCCINATE
  15. ULORIC [Concomitant]
     Active Substance: FEBUXOSTAT
  16. ASPIRIN. [Concomitant]
     Active Substance: ASPIRIN
  17. METHYL PREDNISOLONE [Concomitant]
     Active Substance: METHYLPREDNISOLONE
  18. ALLOPURINOL. [Concomitant]
     Active Substance: ALLOPURINOL
  19. SLO-NIACIN [Concomitant]
     Active Substance: NIACIN
  20. VELTASSA [Suspect]
     Active Substance: PATIROMER
     Indication: HYPERKALAEMIA
     Route: 048
  21. FLUDROCORT [Concomitant]
  22. LIPITOR [Concomitant]
     Active Substance: ATORVASTATIN CALCIUM
  23. NEUROTIN [Concomitant]
     Active Substance: GABAPENTIN

REACTIONS (2)
  - Intestinal polyp [Unknown]
  - Product dose omission [Unknown]

NARRATIVE: CASE EVENT DATE: 20190715
